FAERS Safety Report 8606734-7 (Version None)
Quarter: 2012Q3

REPORT INFORMATION
  Report Type: 
  Country: None (occurrence: None)
  Receive Date: 20120820
  Receipt Date: 20120815
  Transmission Date: 20120928
  Serious: Yes (Life-Threatening, Other)
  Sender: FDA-Public Use
  Company Number: US-BAYER-2012-084247

PATIENT
  Age: 37 Year
  Sex: Female

DRUGS (1)
  1. PARACETAMOL + DIPHENHYDRAMINE [Suspect]

REACTIONS (2)
  - LOSS OF CONSCIOUSNESS [None]
  - HYPOTHERMIA [None]
